FAERS Safety Report 6433044-9 (Version None)
Quarter: 2009Q4

REPORT INFORMATION
  Report Type: 
  Country: None (occurrence: None)
  Receive Date: 20091109
  Receipt Date: 20091102
  Transmission Date: 20100525
  Serious: Yes (Death, Hospitalization, Other)
  Sender: FDA-Public Use
  Company Number: FR-ELI_LILLY_AND_COMPANY-FR200908001421

PATIENT
  Sex: Female

DRUGS (4)
  1. ALIMTA [Suspect]
     Indication: LUNG ADENOCARCINOMA
     Dosage: 800 MG, MONOTHERAPY WITH PREMEDICATION, UNKNOWN
     Route: 042
     Dates: start: 20090709, end: 20090101
  2. NOROXIN [Concomitant]
     Indication: ESCHERICHIA INFECTION
     Dosage: 400 MG, UNKNOWN
     Route: 048
     Dates: start: 20090709, end: 20090712
  3. AMOXICILLIN [Concomitant]
     Indication: ESCHERICHIA INFECTION
     Dosage: UNK, UNKNOWN
     Route: 048
     Dates: start: 20090705, end: 20090708
  4. TARCEVA [Concomitant]
     Dosage: UNK, UNKNOWN
     Route: 065
     Dates: start: 20090807

REACTIONS (6)
  - BLOOD CREATININE INCREASED [None]
  - CANDIDIASIS [None]
  - CREATININE RENAL CLEARANCE DECREASED [None]
  - DEATH [None]
  - RESPIRATORY DISTRESS [None]
  - TOXIC SKIN ERUPTION [None]
